FAERS Safety Report 10075831 (Version 1)
Quarter: 2014Q2

REPORT INFORMATION
  Report Type: Spontaneous
  Country: US (occurrence: US)
  Receive Date: 20140414
  Receipt Date: 20140414
  Transmission Date: 20141212
  Serious: Yes (Other)
  Sender: FDA-Public Use
  Company Number: US-TEVA-474515USA

PATIENT
  Sex: Female

DRUGS (1)
  1. OXYBUTYNIN [Suspect]

REACTIONS (2)
  - Dementia [Unknown]
  - Amnesia [Unknown]
